FAERS Safety Report 26139709 (Version 1)
Quarter: 2025Q4

REPORT INFORMATION
  Report Type: Report from Study
  Country: TR (occurrence: TR)
  Receive Date: 20251210
  Receipt Date: 20251210
  Transmission Date: 20260118
  Serious: Yes (Other)
  Sender: MYLAN
  Company Number: TR-MYLANLABS-2025M1105500

PATIENT
  Age: 52 Year
  Sex: Male

DRUGS (2)
  1. ALPRAZOLAM [Suspect]
     Active Substance: ALPRAZOLAM
     Indication: Catatonia
     Dosage: 2 MILLIGRAM, QD
  2. BIPERIDEN [Suspect]
     Active Substance: BIPERIDEN
     Indication: Catatonia
     Dosage: 2 MILLIGRAM, QD

REACTIONS (2)
  - Treatment failure [Unknown]
  - Product prescribing issue [Unknown]
